FAERS Safety Report 13800906 (Version 1)
Quarter: 2017Q3

REPORT INFORMATION
  Report Type: Spontaneous
  Country: US (occurrence: PL)
  Receive Date: 20170727
  Receipt Date: 20170727
  Transmission Date: 20171127
  Serious: Yes (Death, Life-Threatening, Hospitalization)
  Sender: FDA-Public Use
  Company Number: US-PFIZER INC-799593

PATIENT
  Age: 65 Year
  Sex: Male

DRUGS (1)
  1. CYTARABINE. [Suspect]
     Active Substance: CYTARABINE
     Indication: ACUTE MYELOID LEUKAEMIA
     Dosage: 43.400 MG, QD
     Route: 058
     Dates: start: 20080201, end: 20080210

REACTIONS (2)
  - Acute myeloid leukaemia [Fatal]
  - Haematuria [Unknown]

NARRATIVE: CASE EVENT DATE: 20080216
